FAERS Safety Report 5154728-9 (Version None)
Quarter: 2006Q4

REPORT INFORMATION
  Report Type: 
  Country: None (occurrence: None)
  Receive Date: 20061115
  Receipt Date: 20061115
  Transmission Date: 20070319
  Serious: Yes (Death, Hospitalization)
  Sender: FDA-Public Use
  Company Number: None

PATIENT
  Sex: Female
  Weight: 39.3 kg

DRUGS (15)
  1. MERCAPTOPURINE [Suspect]
     Dosage: 15960 MG  PO
     Route: 048
  2. METHOTREXATE [Suspect]
     Dosage: 1515 MG
     Route: 048
  3. PEG-L-ASPARAGINASE (K-H) [Suspect]
     Dosage: 17750
     Route: 015
  4. THIOGUANINE [Suspect]
     Dosage: 840 MG
     Route: 048
  5. VINCRISTINE SULFATE [Suspect]
     Dosage: 40.5 MG
     Route: 042
  6. CYCLOPHOSPHAMIDE [Suspect]
     Dosage: 3500 MG
     Route: 042
  7. CYTARABINE [Suspect]
     Dosage: 2190 MG
     Route: 037
  8. DAUNORUBICIN HCL [Suspect]
     Dosage: 120 MG
     Route: 042
  9. DEXAMETHASONE [Suspect]
     Dosage: 644 MG
     Route: 048
  10. DOXORUBICIN HYDROCHLORIDE [Suspect]
     Dosage: 84 MG
     Route: 042
  11. ALBUTEROL [Concomitant]
  12. AUGMENTIN '125' [Concomitant]
  13. FLUCONAZOLE [Concomitant]
  14. MIRALAX [Concomitant]
  15. PHENERGAN [Concomitant]

REACTIONS (1)
  - SEPSIS [None]
